FAERS Safety Report 7457781-2 (Version None)
Quarter: 2011Q2

REPORT INFORMATION
  Report Type: 
  Country: None (occurrence: None)
  Receive Date: 20110504
  Receipt Date: 20110426
  Transmission Date: 20111010
  Serious: Yes (Death, Hospitalization)
  Sender: FDA-Public Use
  Company Number: US-ROCHE-767169

PATIENT
  Sex: Female
  Weight: 84.8 kg

DRUGS (2)
  1. TAXOTERE [Suspect]
     Indication: OVARIAN CANCER RECURRENT
     Route: 042
     Dates: start: 20110127, end: 20110203
  2. AVASTIN [Suspect]
     Indication: OVARIAN CANCER RECURRENT
     Dosage: FREQUENCY: WEEKLY, DOSE: 5MG/KG ( 450 MG)
     Route: 042
     Dates: start: 20110127, end: 20110203

REACTIONS (4)
  - NEUTROPENIA [None]
  - ANAEMIA [None]
  - DISEASE PROGRESSION [None]
  - ACUTE RESPIRATORY FAILURE [None]
